FAERS Safety Report 12847646 (Version 1)
Quarter: 2016Q4

REPORT INFORMATION
  Report Type: Spontaneous
  Country: US (occurrence: US)
  Receive Date: 20161013
  Receipt Date: 20161013
  Transmission Date: 20170207
  Serious: Yes (Other)
  Sender: FDA-Public Use
  Company Number: None

PATIENT
  Age: 1 Year
  Sex: Male
  Weight: 10.35 kg

DRUGS (1)
  1. COUGH SYRUP [Suspect]
     Active Substance: DEXTROMETHORPHAN HYDROBROMIDE\GUAIFENESIN
     Indication: PULMONARY CONGESTION
     Dosage: ?          QUANTITY:1 TEASPOON(S); EVERY 6 HOURS?
     Route: 048
     Dates: start: 20160920, end: 20160921

REACTIONS (1)
  - Tremor [None]

NARRATIVE: CASE EVENT DATE: 20160921
